FAERS Safety Report 4747545-2 (Version None)
Quarter: 2005Q3

REPORT INFORMATION
  Report Type: 
  Country: None (occurrence: None)
  Receive Date: 20050818
  Receipt Date: 20040622
  Transmission Date: 20060218
  Serious: No
  Sender: FDA-Public Use
  Company Number: US-BRISTOL-MYERS SQUIBB COMPANY-12623336

PATIENT
  Age: 90 Year
  Sex: Female
  Weight: 49 kg

DRUGS (4)
  1. TEQUIN [Suspect]
     Indication: CYSTITIS
     Route: 048
     Dates: start: 20030601
  2. DYAZIDE [Concomitant]
  3. LASIX [Concomitant]
  4. ARICEPT [Concomitant]

REACTIONS (2)
  - ENERGY INCREASED [None]
  - LOGORRHOEA [None]
